FAERS Safety Report 6717119-2 (Version None)
Quarter: 2010Q2

REPORT INFORMATION
  Report Type: 
  Country: None (occurrence: None)
  Receive Date: 20100510
  Receipt Date: 20100510
  Transmission Date: 20101027
  Serious: Yes (Other)
  Sender: FDA-Public Use
  Company Number: None

PATIENT
  Age: 11 Month
  Sex: Male
  Weight: 9.0719 kg

DRUGS (2)
  1. CONCENTRATED MOTRIN INFANTS DROPS [Suspect]
     Indication: PYREXIA
     Dosage: 1.25 ML EVERY 6-8 HRS PO
     Route: 048
     Dates: start: 20100424, end: 20100429
  2. CONCENTRATED TYLENOL INFANT DROPS [Suspect]
     Indication: PYREXIA
     Dosage: .8 ML EVERY 4 HRS PO
     Route: 048
     Dates: start: 20090903, end: 20090905

REACTIONS (4)
  - AGGRESSION [None]
  - PRODUCT QUALITY ISSUE [None]
  - VOMITING PROJECTILE [None]
  - WEIGHT DECREASED [None]
